FAERS Safety Report 21434767 (Version 1)
Quarter: 2022Q4

REPORT INFORMATION
  Report Type: Spontaneous
  Country: PT (occurrence: PT)
  Receive Date: 20221010
  Receipt Date: 20221010
  Transmission Date: 20230112
  Serious: Yes (Death, Hospitalization)
  Sender: FDA-Public Use
  Company Number: None

PATIENT
  Age: 59 Year
  Sex: Male
  Weight: 82.55 kg

DRUGS (10)
  1. DOCETAXEL [Suspect]
     Active Substance: DOCETAXEL
     Indication: Neoplasm prostate
     Dosage: STRENGTH:75 MG/M2 MILLIGRAM(S)/SQ. METER, 6 CYCLES OF 3/3 WEEKS
     Dates: start: 20211110, end: 20220317
  2. ENZALUTAMIDE [Suspect]
     Active Substance: ENZALUTAMIDE
     Indication: Neoplasm prostate
     Dosage: 4 CAPSULES OF 40MG/DAY DAILY
     Dates: start: 20220426, end: 20220611
  3. VENLAFAXINE [Concomitant]
     Active Substance: VENLAFAXINE HYDROCHLORIDE
  4. TAPENTADOL [Concomitant]
     Active Substance: TAPENTADOL
  5. PREDNISOLONE [Concomitant]
     Active Substance: PREDNISOLONE
  6. SIMVASTATIN [Concomitant]
     Active Substance: SIMVASTATIN
  7. PREGABALIN [Concomitant]
     Active Substance: PREGABALIN
  8. FUROSEMIDE [Concomitant]
     Active Substance: FUROSEMIDE
  9. OLANZAPINE [Concomitant]
     Active Substance: OLANZAPINE
  10. DEFLAZACORT [Concomitant]
     Active Substance: DEFLAZACORT

REACTIONS (1)
  - Cardiac failure [Fatal]

NARRATIVE: CASE EVENT DATE: 20220612
